FAERS Safety Report 22006268 (Version 1)
Quarter: 2023Q1

REPORT INFORMATION
  Report Type: Other
  Country: JP (occurrence: JP)
  Receive Date: 20230217
  Receipt Date: 20230217
  Transmission Date: 20230418
  Serious: Yes (Death, Hospitalization, Other)
  Sender: FDA-Public Use
  Company Number: JP-CHUGAI-2023004934

PATIENT
  Age: 67 Year
  Sex: Male

DRUGS (2)
  1. XELODA [Suspect]
     Active Substance: CAPECITABINE
     Indication: Colon cancer
     Dosage: UNK
     Route: 048
  2. OXALIPLATIN [Concomitant]
     Active Substance: OXALIPLATIN
     Indication: Colon cancer
     Dosage: UNK
     Route: 041

REACTIONS (3)
  - Decreased appetite [Recovering/Resolving]
  - Colon cancer [Fatal]
  - Metastases to peritoneum [Unknown]
